FAERS Safety Report 7333344-4 (Version None)
Quarter: 2011Q1

REPORT INFORMATION
  Report Type: 
  Country: None (occurrence: None)
  Receive Date: 20110304
  Receipt Date: 20110303
  Transmission Date: 20110831
  Serious: Yes (Other)
  Sender: FDA-Public Use
  Company Number: US-PFIZER INC-2011047462

PATIENT
  Sex: Female
  Weight: 108.84 kg

DRUGS (2)
  1. MULTIVITAMIN [Concomitant]
     Dosage: UNK
  2. ADVIL CONGESTION RELIEF [Suspect]
     Indication: CHRONIC SINUSITIS
     Dosage: 1 DF, AS NEEDED
     Route: 048
     Dates: start: 20110101, end: 20110302

REACTIONS (2)
  - PAIN [None]
  - HAEMOPTYSIS [None]
